FAERS Safety Report 7877872-1 (Version None)
Quarter: 2011Q4

REPORT INFORMATION
  Report Type: 
  Country: None (occurrence: None)
  Receive Date: 20111031
  Receipt Date: 20111031
  Transmission Date: 20120403
  Serious: No
  Sender: FDA-Public Use
  Company Number: None

PATIENT
  Age: 40 Year
  Sex: Female
  Weight: 49.895 kg

DRUGS (1)
  1. LEVOFLOXACIN [Suspect]
     Indication: KIDNEY INFECTION
     Dosage: 1 TABLET
     Route: 048
     Dates: start: 20110916, end: 20110919

REACTIONS (5)
  - ARTHRALGIA [None]
  - SWELLING [None]
  - GAIT DISTURBANCE [None]
  - TENDON PAIN [None]
  - IMPAIRED DRIVING ABILITY [None]
